FAERS Safety Report 6774306-5 (Version None)
Quarter: 2010Q2

REPORT INFORMATION
  Report Type: 
  Country: None (occurrence: None)
  Receive Date: 20100520
  Receipt Date: 20090506
  Transmission Date: 20101027
  Serious: Yes (Other)
  Sender: FDA-Public Use
  Company Number: 2008059530

PATIENT
  Age: 63 Year
  Sex: Female
  Weight: 82 kg

DRUGS (6)
  1. PROVERA [Suspect]
     Indication: HORMONE REPLACEMENT THERAPY
     Dosage: ORAL
     Route: 048
  2. PREMARIN [Suspect]
     Indication: HORMONE REPLACEMENT THERAPY
  3. PREMPRO [Suspect]
     Indication: HORMONE REPLACEMENT THERAPY
     Dosage: 0.625 MG
     Dates: start: 19990331, end: 20030421
  4. LEVOTHYROXINE SODIUM [Concomitant]
  5. ALBUTEROL [Concomitant]
  6. RANITIDINE [Concomitant]

REACTIONS (1)
  - BREAST CANCER FEMALE [None]
